FAERS Safety Report 15680860 (Version 1)
Quarter: 2018Q4

REPORT INFORMATION
  Report Type: Spontaneous
  Country: US (occurrence: US)
  Receive Date: 20181203
  Receipt Date: 20181203
  Transmission Date: 20190205
  Serious: No
  Sender: FDA-Public Use
  Company Number: US-PTC THERAPEUTICS, INC.-US-2018PTC001110

PATIENT

DRUGS (1)
  1. EMFLAZA [Suspect]
     Active Substance: DEFLAZACORT
     Indication: MUSCULAR DYSTROPHY
     Dosage: 1.8 ML, QD
     Route: 048
     Dates: start: 20180404

REACTIONS (3)
  - Nasal congestion [Unknown]
  - Headache [Unknown]
  - Diarrhoea [Unknown]
